FAERS Safety Report 11356077 (Version 1)
Quarter: 2015Q3

REPORT INFORMATION
  Report Type: Report from Study
  Country: US (occurrence: US)
  Receive Date: 20150807
  Receipt Date: 20150807
  Transmission Date: 20151125
  Serious: No
  Sender: FDA-Public Use
  Company Number: US-ABBVIE-15P-163-1422667-00

PATIENT
  Sex: Male
  Weight: 93.98 kg

DRUGS (2)
  1. RIBASPHERE [Concomitant]
     Active Substance: RIBAVIRIN
     Indication: CHRONIC HEPATITIS C
  2. VIEKIRA PAK [Suspect]
     Active Substance: DASABUVIR\OMBITASVIR\PARITAPREVIR\RITONAVIR
     Indication: CHRONIC HEPATITIS C
     Dosage: PER MANUFACTURERS PACKAGE DIRECTIONS IN AM AND PM
     Route: 048
     Dates: start: 201505

REACTIONS (2)
  - Energy increased [Unknown]
  - Insomnia [Unknown]
